FAERS Safety Report 5670039-7 (Version None)
Quarter: 2008Q1

REPORT INFORMATION
  Report Type: 
  Country: None (occurrence: None)
  Receive Date: 20080312
  Receipt Date: 20080225
  Transmission Date: 20080703
  Serious: No
  Sender: FDA-Public Use
  Company Number: 8030277

PATIENT
  Age: 14 Year
  Sex: Male
  Weight: 68 kg

DRUGS (2)
  1. METHYLPHENIDATE HCL [Suspect]
     Dosage: 30 MG/D;40 MG/D
     Dates: start: 20070404
  2. METHYLPHENIDATE HCL [Suspect]
     Dosage: 30 MG/D;40 MG/D
     Dates: start: 20070627

REACTIONS (4)
  - GASTROINTESTINAL PAIN [None]
  - HEADACHE [None]
  - MOROSE [None]
  - TIC [None]
